FAERS Safety Report 8928683 (Version 2)
Quarter: 2012Q4

REPORT INFORMATION
  Report Type: 
  Country: US (occurrence: US)
  Receive Date: 20121127
  Receipt Date: 20121130
  Transmission Date: 20130627
  Serious: Yes (Life-Threatening, Other)
  Sender: FDA-Public Use
  Company Number: US-PFIZER INC-2012292562

PATIENT
  Age: 48 Year
  Sex: Male

DRUGS (2)
  1. EPIPEN [Suspect]
     Dosage: two EpiPens
  2. BENADRYL [Concomitant]
     Dosage: two doses

REACTIONS (3)
  - Accidental exposure to product [Unknown]
  - Anaphylactic shock [Unknown]
  - Brain death [Unknown]
